FAERS Safety Report 7814942-8 (Version None)
Quarter: 2011Q4

REPORT INFORMATION
  Report Type: 
  Country: None (occurrence: None)
  Receive Date: 20111013
  Receipt Date: 20111013
  Transmission Date: 20120403
  Serious: Yes (Hospitalization)
  Sender: FDA-Public Use
  Company Number: None

PATIENT
  Sex: Female
  Weight: 52.6173 kg

DRUGS (2)
  1. PRADAXA [Suspect]
     Indication: ATRIAL FIBRILLATION
     Dates: start: 20110701
  2. MULTAQ [Suspect]

REACTIONS (6)
  - NAUSEA [None]
  - DECREASED APPETITE [None]
  - STRESS [None]
  - GASTROINTESTINAL DISORDER [None]
  - RECTAL HAEMORRHAGE [None]
  - BLINDNESS [None]
